FAERS Safety Report 4548698-1 (Version None)
Quarter: 2005Q1

REPORT INFORMATION
  Report Type: 
  Country: None (occurrence: None)
  Receive Date: 20050107
  Receipt Date: 20050107
  Transmission Date: 20050727
  Serious: Yes (Other)
  Sender: FDA-Public Use
  Company Number: None

PATIENT
  Sex: Female
  Weight: 65.7716 kg

DRUGS (1)
  1. LEVORA 0.15/30-28 [Suspect]
     Indication: PREMENSTRUAL SYNDROME
     Dosage: .15        1 PER DAY     ORAL
     Route: 048
     Dates: start: 20041001, end: 20041030

REACTIONS (16)
  - ANXIETY [None]
  - BALANCE DISORDER [None]
  - CONDITION AGGRAVATED [None]
  - CONFUSIONAL STATE [None]
  - DELUSION [None]
  - DIZZINESS [None]
  - FALL [None]
  - FEAR [None]
  - ILLOGICAL THINKING [None]
  - IMPAIRED WORK ABILITY [None]
  - LOSS OF CONSCIOUSNESS [None]
  - MAJOR DEPRESSION [None]
  - PARANOIA [None]
  - PREMENSTRUAL SYNDROME [None]
  - SPEECH DISORDER [None]
  - SUICIDAL IDEATION [None]
